FAERS Safety Report 22537400 (Version 2)
Quarter: 2023Q2

REPORT INFORMATION
  Report Type: Spontaneous
  Country: ID (occurrence: ID)
  Receive Date: 20230608
  Receipt Date: 20230622
  Transmission Date: 20230721
  Serious: Yes (Other)
  Sender: FDA-Public Use
  Company Number: ID-TEVA-2023-ID-2894191

PATIENT
  Age: 49 Year
  Sex: Male

DRUGS (4)
  1. OXALIPLATIN [Suspect]
     Active Substance: OXALIPLATIN
     Indication: Adenocarcinoma of colon
     Dosage: THREE TIMES A WEEK
     Route: 065
  2. OXALIPLATIN [Suspect]
     Active Substance: OXALIPLATIN
     Indication: Metastases to liver
  3. XELODA [Suspect]
     Active Substance: CAPECITABINE
     Indication: Adenocarcinoma of colon
     Dosage: THREE TIMES A WEEK
     Route: 065
  4. XELODA [Suspect]
     Active Substance: CAPECITABINE
     Indication: Metastases to liver

REACTIONS (2)
  - Uraemic encephalopathy [Unknown]
  - Acute kidney injury [Unknown]
